FAERS Safety Report 4443382-7 (Version None)
Quarter: 2004Q3

REPORT INFORMATION
  Report Type: 
  Country: None (occurrence: None)
  Receive Date: 20040802
  Receipt Date: 20040504
  Transmission Date: 20050211
  Serious: No
  Sender: FDA-Public Use
  Company Number: 2004-117055-NL

PATIENT
  Age: 29 Year
  Sex: Female
  Weight: 46.8 kg

DRUGS (5)
  1. NUVARING [Suspect]
     Indication: CONTRACEPTION
     Dosage: DF DAILY VAGINAL
     Route: 067
     Dates: start: 20040425
  2. MULTIVITAMIN [Concomitant]
  3. EVENING PRIMROSE [Concomitant]
  4. ESSENTIAL FATTY ACIDS [Concomitant]
  5. COMBINATION ANTIHISTAMINE DECONGESTANT [Concomitant]

REACTIONS (9)
  - ABDOMINAL PAIN [None]
  - BREAST TENDERNESS [None]
  - HYPERTROPHY BREAST [None]
  - LIBIDO DECREASED [None]
  - MEDICAL DEVICE CHANGE [None]
  - MICTURITION URGENCY [None]
  - MIGRAINE [None]
  - NAUSEA [None]
  - VAGINAL CONTRACEPTIVE DEVICE EXPELLED [None]
